FAERS Safety Report 13238737 (Version 1)
Quarter: 2017Q1

REPORT INFORMATION
  Report Type: Spontaneous
  Country: US (occurrence: US)
  Receive Date: 20170216
  Receipt Date: 20170216
  Transmission Date: 20170428
  Serious: Yes (Other)
  Sender: FDA-Public Use
  Company Number: US-CLINIGEN GROUP PLC/ CLINIGEN HEALTHCARE LTD-E2B_00001803

PATIENT
  Age: 54 Year
  Sex: Male
  Weight: 130 kg

DRUGS (9)
  1. BENADRYL [Concomitant]
     Active Substance: DIPHENHYDRAMINE HYDROCHLORIDE
     Dosage: 50 MG 1 DAY(S)
     Route: 042
     Dates: start: 19970110, end: 19970110
  2. ADRIAMYCIN [Concomitant]
     Active Substance: DOXORUBICIN HYDROCHLORIDE
     Dosage: 100 MG 1 DAY(S)
     Route: 065
     Dates: start: 19970110, end: 19970110
  3. ETHYOL [Suspect]
     Active Substance: AMIFOSTINE
     Indication: ADVERSE DRUG REACTION
     Dosage: 910 MG/M2 1 DAY(S)
     Route: 042
     Dates: start: 19970110, end: 19970110
  4. CYTOXAN [Concomitant]
     Active Substance: CYCLOPHOSPHAMIDE
     Dosage: 1000 MG 1 DAY(S)
     Route: 065
     Dates: start: 19970110, end: 19970110
  5. NORMAL SALINE [Concomitant]
     Active Substance: SODIUM CHLORIDE
     Dosage: 300 CC 1 DAY(S)
     Route: 042
     Dates: start: 19970110, end: 19970110
  6. CISPLATIN. [Concomitant]
     Active Substance: CISPLATIN
     Dosage: 200MG 1 DAY(S)
     Route: 065
     Dates: start: 19970110, end: 19970110
  7. ZOFRAN (ONDANSETRON) [Concomitant]
     Dosage: 24 MG 1 DAY(S)
     Route: 042
     Dates: start: 19970110, end: 19970110
  8. DECADRON [Concomitant]
     Active Substance: DEXAMETHASONE
     Dosage: 20 MG 1 DAY(S)
     Route: 042
     Dates: start: 19970110, end: 19970110
  9. ZANTAC [Concomitant]
     Active Substance: RANITIDINE HYDROCHLORIDE
     Dosage: 50 MG 1 DAY(S)
     Route: 042
     Dates: start: 19970110, end: 19970110

REACTIONS (5)
  - Hyperhidrosis [Unknown]
  - Flushing [Unknown]
  - Hypotension [Unknown]
  - Acute kidney injury [Recovering/Resolving]
  - Blood creatinine increased [Unknown]

NARRATIVE: CASE EVENT DATE: 19970110
